FAERS Safety Report 18475622 (Version 2)
Quarter: 2020Q4

REPORT INFORMATION
  Report Type: Spontaneous
  Country: CN (occurrence: CN)
  Receive Date: 20201106
  Receipt Date: 20201125
  Transmission Date: 20210114
  Serious: Yes (Death)
  Sender: FDA-Public Use
  Company Number: CN-GE HEALTHCARE LIFE SCIENCES-2020CSU005688

PATIENT

DRUGS (4)
  1. VISIPAQUE [Suspect]
     Active Substance: IODIXANOL
     Indication: PERCUTANEOUS CORONARY INTERVENTION
     Dosage: 100 ML, SINGLE
     Route: 013
     Dates: start: 20201028, end: 20201028
  2. VISIPAQUE [Suspect]
     Active Substance: IODIXANOL
     Indication: MYOCARDIAL INFARCTION
  3. VISIPAQUE [Suspect]
     Active Substance: IODIXANOL
     Indication: ANGIOCARDIOGRAM
  4. VISIPAQUE [Suspect]
     Active Substance: IODIXANOL
     Indication: CHEST PAIN

REACTIONS (3)
  - Acute myocardial infarction [Fatal]
  - Cardio-respiratory arrest [Fatal]
  - Anaphylactic shock [Fatal]

NARRATIVE: CASE EVENT DATE: 20201028
